FAERS Safety Report 5563046-6 (Version None)
Quarter: 2007Q4

REPORT INFORMATION
  Report Type: 
  Country: None (occurrence: None)
  Receive Date: 20071217
  Receipt Date: 20071207
  Transmission Date: 20080405
  Serious: Yes (Other)
  Sender: FDA-Public Use
  Company Number: A0680901A

PATIENT
  Age: 52 Year
  Sex: Female
  Weight: 65.9 kg

DRUGS (11)
  1. TYKERB [Suspect]
     Indication: BREAST CANCER
     Dosage: 1250MG PER DAY
     Route: 048
     Dates: start: 20070521
  2. XELODA [Suspect]
     Indication: BREAST CANCER
     Dosage: 2500MG PER DAY
     Route: 048
     Dates: start: 20070521
  3. IBUPROFEN [Concomitant]
     Indication: BACK PAIN
  4. ENZYMES [Concomitant]
     Indication: SUPPLEMENTATION THERAPY
     Route: 048
  5. IRON [Concomitant]
     Indication: SUPPLEMENTATION THERAPY
     Route: 048
  6. GLUCOSAMINE + CHONDROITIN [Concomitant]
     Indication: SUPPLEMENTATION THERAPY
     Route: 048
  7. CALCIUM + VITAMIN D [Concomitant]
     Route: 048
  8. ACIDOPHILUS [Concomitant]
     Indication: SUPPLEMENTATION THERAPY
     Route: 048
  9. OMEGA 3 FISH OIL [Concomitant]
     Indication: SUPPLEMENTATION THERAPY
     Route: 048
  10. VITAMIN B6 [Concomitant]
     Indication: SUPPLEMENTATION THERAPY
     Route: 048
  11. COUMADIN [Concomitant]
     Route: 048

REACTIONS (6)
  - ABDOMINAL PAIN [None]
  - BILIRUBIN CONJUGATED INCREASED [None]
  - BLOOD BILIRUBIN INCREASED [None]
  - DYSPEPSIA [None]
  - JAUNDICE [None]
  - NAUSEA [None]
